FAERS Safety Report 8065334-0 (Version None)
Quarter: 2012Q1

REPORT INFORMATION
  Report Type: 
  Country: None (occurrence: None)
  Receive Date: 20120124
  Receipt Date: 20120119
  Transmission Date: 20120608
  Serious: Yes (Other)
  Sender: FDA-Public Use
  Company Number: US-JNJFOC-20120108483

PATIENT
  Sex: Female
  Weight: 63.5 kg

DRUGS (1)
  1. LEVAQUIN [Suspect]
     Indication: SINUSITIS
     Route: 048
     Dates: start: 20111219, end: 20111223

REACTIONS (2)
  - ARTHRALGIA [None]
  - INFLAMMATION [None]
